FAERS Safety Report 10181673 (Version 2)
Quarter: 2014Q2

REPORT INFORMATION
  Report Type: Spontaneous
  Country: US (occurrence: US)
  Receive Date: 20140519
  Receipt Date: 20140625
  Transmission Date: 20141212
  Serious: Yes (Hospitalization)
  Sender: FDA-Public Use
  Company Number: US-ELI_LILLY_AND_COMPANY-US201405002956

PATIENT
  Age: 49 Year
  Sex: Female
  Weight: 90.25 kg

DRUGS (7)
  1. ZYPREXA RELPREVV [Suspect]
     Indication: SCHIZOPHRENIA
     Dosage: 300 MG, 2/M (EVERY 2 WEEKS)
     Route: 030
     Dates: start: 201312
  2. ZYPREXA RELPREVV [Suspect]
     Indication: BIPOLAR DISORDER
  3. OMEPRAZOLE [Concomitant]
     Dosage: UNK, UNKNOWN
     Route: 065
  4. FLONASE [Concomitant]
     Dosage: UNK, UNKNOWN
     Route: 065
  5. ALBUTEROL                          /00139501/ [Concomitant]
     Dosage: UNK, UNKNOWN
     Route: 065
  6. ASA [Concomitant]
     Dosage: UNK, UNKNOWN
     Route: 065
  7. CLARITIN                           /00917501/ [Concomitant]
     Dosage: UNK, UNKNOWN
     Route: 065

REACTIONS (2)
  - Pulmonary embolism [Recovered/Resolved]
  - Drug dose omission [Unknown]
